FAERS Safety Report 12678029 (Version 1)
Quarter: 2016Q3

REPORT INFORMATION
  Report Type: Spontaneous
  Country: US (occurrence: US)
  Receive Date: 20160823
  Receipt Date: 20160823
  Transmission Date: 20161109
  Serious: Yes (Other)
  Sender: FDA-Public Use
  Company Number: US-SAOL THERAPEUTICS-2016SAO00072

PATIENT
  Sex: Male
  Weight: 56.69 kg

DRUGS (7)
  1. MERINOL [Concomitant]
     Dosage: 5 MG, 3X/DAY
  2. BACLOFEN. [Suspect]
     Active Substance: BACLOFEN
     Indication: MUSCLE SPASTICITY
     Dosage: UNKNOWN
     Route: 037
  3. VALIUM [Concomitant]
     Active Substance: DIAZEPAM
     Dosage: 10 MG 3X A DAY
  4. BACLOFEN. [Suspect]
     Active Substance: BACLOFEN
     Indication: SPINAL CORD INJURY
  5. SOMA [Concomitant]
     Active Substance: CARISOPRODOL
     Dosage: 325 MG, 3X/DAY
  6. HYDROCODONE [Concomitant]
     Active Substance: HYDROCODONE
     Dosage: 1 TAB Q 6 HOURS
  7. BACLOFEN. [Concomitant]
     Active Substance: BACLOFEN
     Dosage: 10 MG, 3X/DAY
     Route: 048

REACTIONS (7)
  - Muscle spasms [Unknown]
  - Fall [Unknown]
  - Device infusion issue [Unknown]
  - Neuralgia [Unknown]
  - Therapy non-responder [Unknown]
  - Decubitus ulcer [Unknown]
  - Pain [Unknown]

NARRATIVE: CASE EVENT DATE: 2014
